FAERS Safety Report 6422654-0 (Version None)
Quarter: 2009Q4

REPORT INFORMATION
  Report Type: 
  Country: None (occurrence: None)
  Receive Date: 20091102
  Receipt Date: 20091020
  Transmission Date: 20100525
  Serious: No
  Sender: FDA-Public Use
  Company Number: US-JNJFOC-20091009148

PATIENT
  Sex: Male
  Weight: 79.38 kg

DRUGS (1)
  1. DURAGESIC-100 [Suspect]
     Indication: ELECTROCUTION
     Route: 062
     Dates: start: 20091009

REACTIONS (6)
  - DRUG ADMINISTERED AT INAPPROPRIATE SITE [None]
  - DRUG INEFFECTIVE [None]
  - INAPPROPRIATE SCHEDULE OF DRUG ADMINISTRATION [None]
  - INFLUENZA LIKE ILLNESS [None]
  - WITHDRAWAL SYNDROME [None]
  - WRONG TECHNIQUE IN DRUG USAGE PROCESS [None]
